FAERS Safety Report 18869810 (Version 10)
Quarter: 2021Q3

REPORT INFORMATION
  Report Type: Report from Study
  Country: IL (occurrence: IL)
  Receive Date: 20210209
  Receipt Date: 20210809
  Transmission Date: 20211014
  Serious: Yes (Death, Hospitalization)
  Sender: FDA-Public Use
  Company Number: IL-EISAI MEDICAL RESEARCH-EC-2020-084755

PATIENT
  Age: 66 Year
  Sex: Male
  Weight: 41 kg

DRUGS (14)
  1. PEMBROLIZUMAB. [Suspect]
     Active Substance: PEMBROLIZUMAB
     Route: 041
     Dates: start: 20210112, end: 20210112
  2. MEGAXIA ES [Concomitant]
     Route: 065
     Dates: start: 20200414
  3. SEROQUEL [Concomitant]
     Active Substance: QUETIAPINE FUMARATE
     Route: 065
     Dates: start: 202007
  4. PEMBROLIZUMAB. [Suspect]
     Active Substance: PEMBROLIZUMAB
     Route: 041
     Dates: start: 20201110, end: 20201110
  5. PRAMIN [Concomitant]
     Route: 065
     Dates: start: 20200922
  6. LENVATINIB [Suspect]
     Active Substance: LENVATINIB
     Indication: NON-SMALL CELL LUNG CANCER
     Dosage: STARTING DOSE: 20 MG, FLUCTUATED DOSE
     Route: 048
     Dates: start: 20200116, end: 20200724
  7. REOLIN [Concomitant]
     Dates: start: 20201106
  8. NEXIUM [Concomitant]
     Active Substance: ESOMEPRAZOLE MAGNESIUM
     Route: 065
     Dates: start: 201601, end: 20201130
  9. ROKACET PLUS [Concomitant]
     Route: 065
     Dates: start: 20200213
  10. V DALGIN [Concomitant]
     Route: 065
     Dates: start: 20200213
  11. FENTANYL TRANSDERMAL SYSTEM [Concomitant]
     Active Substance: FENTANYL
     Route: 065
     Dates: start: 20200213
  12. PEMBROLIZUMAB. [Suspect]
     Active Substance: PEMBROLIZUMAB
     Indication: NON-SMALL CELL LUNG CANCER
     Route: 041
     Dates: start: 20200116, end: 20201020
  13. LENVATINIB [Suspect]
     Active Substance: LENVATINIB
     Route: 048
     Dates: start: 20200725, end: 20200725
  14. PEMBROLIZUMAB. [Suspect]
     Active Substance: PEMBROLIZUMAB
     Route: 041
     Dates: start: 20201208, end: 20201208

REACTIONS (2)
  - Anaemia [Recovered/Resolved]
  - Duodenal ulcer [Recovered/Resolved]

NARRATIVE: CASE EVENT DATE: 20201124
